FAERS Safety Report 8227992-7 (Version None)
Quarter: 2012Q1

REPORT INFORMATION
  Report Type: 
  Country: None (occurrence: None)
  Receive Date: 20120322
  Receipt Date: 20120127
  Transmission Date: 20120608
  Serious: No
  Sender: FDA-Public Use
  Company Number: US-BRISTOL-MYERS SQUIBB COMPANY-16372443

PATIENT
  Age: 79 Year
  Sex: Female
  Weight: 59 kg

DRUGS (2)
  1. ERBITUX [Suspect]
     Indication: TONGUE NEOPLASM MALIGNANT STAGE UNSPECIFIED
     Dosage: TEMPORARILY STOPPED ON 23JAN2012
     Dates: start: 20111212
  2. ERBITUX [Suspect]
     Indication: THROAT CANCER
     Dosage: TEMPORARILY STOPPED ON 23JAN2012
     Dates: start: 20111212

REACTIONS (3)
  - WEIGHT DECREASED [None]
  - MOUTH ULCERATION [None]
  - NECK PAIN [None]
